FAERS Safety Report 16576769 (Version 6)
Quarter: 2021Q4

REPORT INFORMATION
  Report Type: Report from Study
  Country: US (occurrence: US)
  Receive Date: 20190716
  Receipt Date: 20211004
  Transmission Date: 20220303
  Serious: Yes (Other)
  Sender: FDA-Public Use
  Company Number: US-NOVARTISPH-PHEH2019US029496

PATIENT
  Sex: Male

DRUGS (2)
  1. ENTRESTO [Suspect]
     Active Substance: SACUBITRIL\VALSARTAN
     Indication: Product used for unknown indication
     Dosage: UNK
     Route: 065
  2. ENTRESTO [Suspect]
     Active Substance: SACUBITRIL\VALSARTAN
     Dosage: 1 DF, BID (24/26 MG)
     Route: 065
     Dates: start: 20210823

REACTIONS (10)
  - Seizure [Unknown]
  - Cardiac dysfunction [Unknown]
  - Renal failure [Unknown]
  - Accident [Unknown]
  - Injury corneal [Unknown]
  - Illness [Unknown]
  - Influenza [Unknown]
  - Pharyngitis streptococcal [Unknown]
  - Dehydration [Unknown]
  - Blood sodium decreased [Unknown]

NARRATIVE: CASE EVENT DATE: 20190101
